FAERS Safety Report 4740482-9 (Version None)
Quarter: 2005Q3

REPORT INFORMATION
  Report Type: 
  Country: None (occurrence: None)
  Receive Date: 20050810
  Receipt Date: 20050729
  Transmission Date: 20060218
  Serious: Yes (Hospitalization)
  Sender: FDA-Public Use
  Company Number: DE-BOEHRINGER INGELHEIM PHARMACEUTICALS, INC.-2005-DE-03085DE

PATIENT

DRUGS (1)
  1. MICARDIS [Suspect]

REACTIONS (1)
  - ADVERSE EVENT [None]
